FAERS Safety Report 21047757 (Version 1)
Quarter: 2022Q3

REPORT INFORMATION
  Report Type: Spontaneous
  Country: US (occurrence: US)
  Receive Date: 20220706
  Receipt Date: 20220706
  Transmission Date: 20221027
  Serious: No
  Sender: FDA-Public Use
  Company Number: US-KARYOPHARM-2022KPT000706

PATIENT

DRUGS (12)
  1. XPOVIO [Suspect]
     Active Substance: SELINEXOR
     Indication: Glioblastoma
     Dosage: 80 MG, WEEKLY
     Route: 048
     Dates: start: 202206
  2. BALVERSA [Concomitant]
     Active Substance: ERDAFITINIB
  3. CIPROFLOXACIN [Concomitant]
     Active Substance: CIPROFLOXACIN
  4. DEXAMETHASONE [Concomitant]
     Active Substance: DEXAMETHASONE
  5. DIAZEPAM [Concomitant]
     Active Substance: DIAZEPAM
  6. LENVATINIB [Concomitant]
     Active Substance: LENVATINIB
  7. LORAZEPAM [Concomitant]
     Active Substance: LORAZEPAM
  8. MIRTAZAPINE [Concomitant]
     Active Substance: MIRTAZAPINE
  9. REGORAFENIB [Concomitant]
     Active Substance: REGORAFENIB
  10. SILVER SULFADIAZINE [Concomitant]
     Active Substance: SILVER SULFADIAZINE
  11. TIMOLOL MALEATE [Concomitant]
     Active Substance: TIMOLOL MALEATE
  12. XARELTO [Concomitant]
     Active Substance: RIVAROXABAN

REACTIONS (2)
  - Off label use [Unknown]
  - No adverse event [Unknown]

NARRATIVE: CASE EVENT DATE: 20220601
